FAERS Safety Report 9020258 (Version 1)
Quarter: 2013Q1

REPORT INFORMATION
  Report Type: Spontaneous
  Country: US (occurrence: US)
  Receive Date: 20130119
  Receipt Date: 20130119
  Transmission Date: 20140127
  Serious: No
  Sender: FDA-Public Use
  Company Number: US-ALLERGAN-1209637US

PATIENT
  Age: 75 None
  Sex: Female
  Weight: 58.96 kg

DRUGS (10)
  1. BOTOX? [Suspect]
     Indication: MIGRAINE
     Dosage: 185 UNITS, SINGLE
     Route: 030
     Dates: start: 20120626, end: 20120626
  2. LYRICA [Concomitant]
     Indication: MIGRAINE
     Dosage: 25 MG, UNK
     Route: 048
     Dates: start: 20120612
  3. NORTRIPTYLINE [Concomitant]
     Indication: MIGRAINE
     Dosage: 50 MG, QHS
     Route: 048
     Dates: start: 20120521
  4. NABUMETONE [Concomitant]
     Indication: PRODUCT USED FOR UNKNOWN INDICATION
  5. VITAMIN D                          /00318501/ [Concomitant]
     Indication: PRODUCT USED FOR UNKNOWN INDICATION
     Dosage: 50000 UNITS, BI-WEEKLY
  6. EVISTA                             /01303201/ [Concomitant]
     Indication: PRODUCT USED FOR UNKNOWN INDICATION
     Dosage: UNK
     Route: 048
  7. PROPRANOLOL [Concomitant]
     Indication: MIGRAINE
     Dosage: 20 MG, UNK
     Route: 048
  8. SYNTHROID [Concomitant]
     Indication: HYPOTHYROIDISM
     Dosage: 0.05 MG, UNK
     Route: 048
  9. LIPITOR [Concomitant]
     Indication: PRODUCT USED FOR UNKNOWN INDICATION
     Dosage: 20 MG, UNK
     Route: 048
  10. VITAMIN D /00107901/ [Concomitant]
     Indication: PRODUCT USED FOR UNKNOWN INDICATION
     Dosage: 400 UNITS, UNK
     Route: 048
     Dates: start: 20120530

REACTIONS (1)
  - Musculoskeletal stiffness [Recovered/Resolved]
